FAERS Safety Report 7241187-5 (Version None)
Quarter: 2011Q1

REPORT INFORMATION
  Report Type: 
  Country: None (occurrence: None)
  Receive Date: 20110124
  Receipt Date: 20110113
  Transmission Date: 20110831
  Serious: Yes (Hospitalization)
  Sender: FDA-Public Use
  Company Number: US-ASTRAZENECA-2011SE02289

PATIENT
  Age: 11 Year
  Sex: Female
  Weight: 59 kg

DRUGS (6)
  1. TENEX [Concomitant]
     Dosage: 1MG QID
  2. SEROQUEL [Suspect]
     Indication: BIPOLAR DISORDER
     Route: 048
     Dates: start: 20050101, end: 20100101
  3. SEROQUEL [Suspect]
     Route: 048
     Dates: start: 20100101
  4. BENADRYL [Concomitant]
     Dosage: AT NIGHT
  5. SEROQUEL [Suspect]
     Indication: ATTENTION DEFICIT/HYPERACTIVITY DISORDER
     Route: 048
     Dates: start: 20050101, end: 20100101
  6. SEROQUEL [Suspect]
     Route: 048
     Dates: start: 20100101

REACTIONS (7)
  - SCREAMING [None]
  - INSOMNIA [None]
  - DRUG DOSE OMISSION [None]
  - THINKING ABNORMAL [None]
  - MOOD SWINGS [None]
  - AGGRESSION [None]
  - ABNORMAL BEHAVIOUR [None]
